FAERS Safety Report 4287057-6 (Version None)
Quarter: 2004Q1

REPORT INFORMATION
  Report Type: 
  Country: None (occurrence: None)
  Receive Date: 20040121
  Receipt Date: 20030708
  Transmission Date: 20041129
  Serious: Yes (Hospitalization)
  Sender: FDA-Public Use
  Company Number: A03200301520

PATIENT
  Age: 84 Year
  Sex: Male

DRUGS (2)
  1. PLAVIX [Suspect]
     Indication: CORONARY ARTERY DISEASE
     Dosage: 75 MG QD  - ORAL
     Route: 048
     Dates: start: 20020101, end: 20030601
  2. ACETYLSALICULIC ACID [Concomitant]

REACTIONS (1)
  - RETROPERITONEAL HAEMORRHAGE [None]
